FAERS Safety Report 14252182 (Version 2)
Quarter: 2017Q4

REPORT INFORMATION
  Report Type: Spontaneous
  Country: DE (occurrence: DE)
  Receive Date: 20171205
  Receipt Date: 20171212
  Transmission Date: 20180321
  Serious: Yes (Life-Threatening, Hospitalization, Other)
  Sender: FDA-Public Use
  Company Number: DE-TEVA-2017-DE-827909

PATIENT
  Age: 57 Year
  Sex: Male
  Weight: 70 kg

DRUGS (12)
  1. ATORVASTATIN 20 MG [Concomitant]
     Active Substance: ATORVASTATIN
     Dosage: 20 MILLIGRAM DAILY; IN THE EVENING
     Route: 048
  2. VITAMIN D3 (NOT FURTHER SPECIFIED) [Concomitant]
     Dosage: 2 DOSAGE FORMS DAILY; PERMANENT MEDICATION
     Route: 048
  3. TRAMAL LONG [Concomitant]
     Active Substance: TRAMADOL
     Indication: INTERVERTEBRAL DISC PROTRUSION
     Dosage: 2 DOSAGE FORMS DAILY; PERMANENT MEDICATION
     Route: 048
  4. VIANI DISKUS 50/250 [Concomitant]
     Indication: BRONCHITIS
     Dosage: 2X1 PUFF, PERMANENT MEDICATION
     Route: 055
  5. AGGRENOX 200/25 MG [Concomitant]
     Indication: CEREBROVASCULAR ACCIDENT
     Dosage: 2 DOSAGE FORMS DAILY; 1DF CONTAINS 25 MG ACETYLSALICYLIC ACID AND 200 MG DIPYRIDAMOLE; PERMANENT MED
     Route: 048
  6. IBUPROFEN (NOT FURTHER SPECIFIED) [Concomitant]
     Dosage: AS REQUIRED, OCCASIONALLY
     Route: 048
  7. CEFUROXIM-RATIOPHARM 1500 MG P.I. [Suspect]
     Active Substance: CEFUROXIME
     Indication: ANTIBIOTIC PROPHYLAXIS
     Dosage: ADMINISTRATION OF 1.5 G ONCE
     Route: 042
  8. MONO EMBOLEX 3000 [Concomitant]
     Dosage: 1 DOSAGE FORMS DAILY; INVASIVELY, TEMPORARILY
  9. NOVAMINSULFON 500 MG [Concomitant]
     Active Substance: METAMIZOLE
     Indication: INTERVERTEBRAL DISC PROTRUSION
     Dosage: 4 DOSAGE FORMS DAILY; PERMANENT MEDICATION
     Route: 048
  10. MIDAZOLAM 7.5 MG [Concomitant]
     Indication: PREOPERATIVE CARE
     Dosage: 1X1, ONE HOUR BEFORE SURGERY
     Route: 048
  11. PANTOPRAZOLE SODIUM. [Concomitant]
     Active Substance: PANTOPRAZOLE SODIUM
     Dosage: 40 MILLIGRAM DAILY; IN THE EVENING, PERMANENT MEDICATION
     Route: 048
  12. EUTHYROX 125 [Concomitant]
     Indication: HYPOTHYROIDISM
     Dosage: 1 DOSAGE FORMS DAILY; IN THE MORNING, PERMANENT MEDICATION
     Route: 048

REACTIONS (1)
  - Anaphylactic shock [Not Recovered/Not Resolved]

NARRATIVE: CASE EVENT DATE: 20171123
